FAERS Safety Report 5821949-9 (Version None)
Quarter: 2008Q3

REPORT INFORMATION
  Report Type: 
  Country: None (occurrence: None)
  Receive Date: 20080724
  Receipt Date: 20080715
  Transmission Date: 20090109
  Serious: Yes (Other)
  Sender: FDA-Public Use
  Company Number: TR-GENENTECH-264930

PATIENT
  Age: 14 Year
  Sex: Male

DRUGS (2)
  1. AVASTIN [Suspect]
     Indication: RETINAL TELANGIECTASIA
     Dosage: 1.25 MG, UNK
     Route: 031
  2. TRIAMCINOLONE ACETONIDE [Concomitant]
     Indication: RETINAL TELANGIECTASIA
     Dosage: 2 MG, UNK
     Route: 031

REACTIONS (1)
  - INTRAOCULAR PRESSURE INCREASED [None]
